FAERS Safety Report 6856119-9 (Version None)
Quarter: 2010Q3

REPORT INFORMATION
  Report Type: 
  Country: None (occurrence: None)
  Receive Date: 20100719
  Receipt Date: 20100705
  Transmission Date: 20110219
  Serious: Yes (Death, Other)
  Sender: FDA-Public Use
  Company Number: PHFR2010IE00775

PATIENT
  Sex: Male

DRUGS (1)
  1. CLOZARIL [Suspect]
     Indication: SCHIZOPHRENIA
     Dosage: UNK
     Dates: start: 20090227

REACTIONS (5)
  - ARM AMPUTATION [None]
  - DEATH [None]
  - DRUG ABUSE [None]
  - HYPOTHERMIA [None]
  - LOSS OF CONSCIOUSNESS [None]
